FAERS Safety Report 6255488-0 (Version None)
Quarter: 2009Q3

REPORT INFORMATION
  Report Type: 
  Country: None (occurrence: None)
  Receive Date: 20090702
  Receipt Date: 20090624
  Transmission Date: 20100115
  Serious: Yes (Hospitalization)
  Sender: FDA-Public Use
  Company Number: DE-ABBOTT-09P-062-0581924-00

PATIENT
  Sex: Female

DRUGS (1)
  1. HUMIRA [Suspect]
     Indication: ANKYLOSING SPONDYLITIS
     Dosage: EVERY WEEK
     Dates: start: 20090121

REACTIONS (4)
  - ASTHENIA [None]
  - BLOOD COUNT ABNORMAL [None]
  - MOBILITY DECREASED [None]
  - WEIGHT DECREASED [None]
